FAERS Safety Report 7261640-8 (Version None)
Quarter: 2011Q1

REPORT INFORMATION
  Report Type: 
  Country: None (occurrence: None)
  Receive Date: 20110130
  Receipt Date: 20101021
  Transmission Date: 20110831
  Serious: No
  Sender: FDA-Public Use
  Company Number: US-ABBOTT-10P-163-0680564-00

PATIENT
  Age: 22 Year
  Sex: Male

DRUGS (2)
  1. HUMIRA [Suspect]
     Indication: CROHN'S DISEASE
     Dosage: INITIAL DOSE
     Route: 058
     Dates: start: 20101015
  2. HUMIRA [Suspect]
     Route: 058

REACTIONS (4)
  - MUSCULAR WEAKNESS [None]
  - FLUSHING [None]
  - ABDOMINAL PAIN [None]
  - HEADACHE [None]
